FAERS Safety Report 22538462 (Version 3)
Quarter: 2024Q1

REPORT INFORMATION
  Report Type: Spontaneous
  Country: PT (occurrence: PT)
  Receive Date: 20230609
  Receipt Date: 20240116
  Transmission Date: 20240409
  Serious: Yes (Other)
  Sender: FDA-Public Use
  Company Number: PT-CELLTRION INC.-2023PT011555

PATIENT

DRUGS (3)
  1. BEVACIZUMAB [Suspect]
     Active Substance: BEVACIZUMAB
     Indication: Hepatic cancer
     Dosage: 7.5 MG/KG, 3 WEEK
     Route: 065
     Dates: start: 20210927, end: 20230213
  2. ATEZOLIZUMAB [Suspect]
     Active Substance: ATEZOLIZUMAB
     Indication: Hepatic cancer
     Dosage: 1200 MILLIGRAM, 3 WEEK
     Route: 042
     Dates: start: 20210927, end: 20230213
  3. SOFOSBUVIR [Concomitant]
     Active Substance: SOFOSBUVIR

REACTIONS (10)
  - Toxicity to various agents [Recovered/Resolved]
  - Hyperbilirubinaemia [Recovered/Resolved]
  - Thrombocytopenia [Recovered/Resolved]
  - Hepatic lesion [Unknown]
  - Diarrhoea [Recovered/Resolved]
  - Asthenia [Recovered/Resolved]
  - Hepatitis C virus test positive [Unknown]
  - Hypertension [Recovered/Resolved]
  - Platelet count decreased [Unknown]
  - Intentional product use issue [Unknown]
